FAERS Safety Report 12787426 (Version 1)
Quarter: 2016Q3

REPORT INFORMATION
  Report Type: Spontaneous
  Country: US (occurrence: US)
  Receive Date: 20160927
  Receipt Date: 20160927
  Transmission Date: 20161109
  Serious: Yes (Disabling)
  Sender: FDA-Public Use
  Company Number: None

PATIENT
  Age: 72 Year
  Sex: Male
  Weight: 70.2 kg

DRUGS (5)
  1. AMBIEN [Concomitant]
     Active Substance: ZOLPIDEM TARTRATE
  2. AMANTADINE [Concomitant]
     Active Substance: AMANTADINE
  3. PREDNISONE. [Concomitant]
     Active Substance: PREDNISONE
  4. REMICADE [Concomitant]
     Active Substance: INFLIXIMAB
  5. CITALOPRAM [Suspect]
     Active Substance: CITALOPRAM HYDROBROMIDE
     Indication: DEPRESSION
     Route: 048
     Dates: start: 20160914, end: 20160916

REACTIONS (3)
  - Parkinson^s disease [None]
  - Abasia [None]
  - Urine output increased [None]

NARRATIVE: CASE EVENT DATE: 20160917
